FAERS Safety Report 9580155 (Version 1)
Quarter: 2013Q4

REPORT INFORMATION
  Report Type: Spontaneous
  Country: SK (occurrence: SK)
  Receive Date: 20131002
  Receipt Date: 20131002
  Transmission Date: 20140711
  Serious: Yes (Hospitalization)
  Sender: FDA-Public Use
  Company Number: SK-BRISTOL-MYERS SQUIBB COMPANY-19433895

PATIENT
  Age: 63 Year
  Sex: Female

DRUGS (1)
  1. ERBITUX [Suspect]
     Indication: OROPHARYNGEAL CANCER
     Dosage: MAY08-JUL08-400MG/M2.?REDUCED TO 250MG/M2?TOTAL ADMINISTERED 8 DOSES.
     Dates: start: 200805, end: 200807

REACTIONS (4)
  - Dysphagia [Recovered/Resolved with Sequelae]
  - Dermatitis [Recovered/Resolved]
  - Mucosal inflammation [Unknown]
  - Nausea [Recovered/Resolved]
